FAERS Safety Report 6405044-6 (Version None)
Quarter: 2009Q4

REPORT INFORMATION
  Report Type: 
  Country: None (occurrence: None)
  Receive Date: 20091019
  Receipt Date: 20091007
  Transmission Date: 20100525
  Serious: Yes (Hospitalization)
  Sender: FDA-Public Use
  Company Number: FR-PFIZER INC-2009279335

PATIENT
  Age: 73 Year

DRUGS (12)
  1. TAHOR [Suspect]
     Dosage: 20 MG, 1X/DAY
     Route: 048
     Dates: end: 20090813
  2. METFORMIN [Suspect]
     Dosage: 1000 MG, 3X/DAY
     Route: 048
     Dates: end: 20090813
  3. COAPROVEL [Suspect]
     Dosage: 300 MG, 1X/DAY
     Route: 048
     Dates: end: 20090813
  4. RILMENIDINE [Suspect]
     Dosage: 1 MG, 2X/DAY
     Route: 048
     Dates: end: 20090813
  5. KARDEGIC [Suspect]
     Dosage: 75 MG, 1X/DAY
     Route: 048
     Dates: end: 20090813
  6. DIAMICRON [Suspect]
     Dosage: 80 MG, 2X/DAY
     Route: 048
     Dates: end: 20090813
  7. KERLONE [Suspect]
     Dosage: 20 MG, 1X/DAY
     Route: 048
     Dates: end: 20090813
  8. BETASERC [Suspect]
     Dosage: 24 MG, 2X/DAY
     Route: 048
     Dates: end: 20090813
  9. LAROXYL [Suspect]
     Dosage: 7 GTT, 1X/DAY
     Route: 048
     Dates: end: 20090813
  10. TAMIFLU [Suspect]
     Indication: INFLUENZA LIKE ILLNESS
     Dosage: UNK
     Dates: start: 20090811
  11. ORACILLINE [Suspect]
     Indication: ERYSIPELAS
     Dosage: UNK
     Dates: start: 20090812
  12. COVERSYL [Suspect]
     Dosage: 4 MG, 1X/DAY
     Route: 048
     Dates: end: 20090813

REACTIONS (1)
  - HYPERLACTACIDAEMIA [None]
